FAERS Safety Report 25300278 (Version 1)
Quarter: 2025Q2

REPORT INFORMATION
  Report Type: Spontaneous
  Country: US (occurrence: None)
  Receive Date: 20250510
  Receipt Date: 20250510
  Transmission Date: 20250717
  Serious: Yes (Disabling, Other)
  Sender: FDA-CTU
  Company Number: None

PATIENT
  Age: 54 Year
  Sex: Female
  Weight: 85.5 kg

DRUGS (13)
  1. REMICADE [Suspect]
     Active Substance: INFLIXIMAB
     Indication: Crohn^s disease
     Route: 042
  2. TRAZODONE [Concomitant]
     Active Substance: TRAZODONE HYDROCHLORIDE
  3. LITHIUM [Concomitant]
     Active Substance: LITHIUM
  4. BUPROPION [Concomitant]
     Active Substance: BUPROPION
  5. GABAPENTIN [Concomitant]
     Active Substance: GABAPENTIN
  6. HYDROCODONE [Concomitant]
     Active Substance: HYDROCODONE
  7. MYRBETRIQ [Concomitant]
     Active Substance: MIRABEGRON
  8. PROBIOTICS NOS [Concomitant]
     Active Substance: PROBIOTICS NOS
  9. TIZANIDINE [Concomitant]
     Active Substance: TIZANIDINE
  10. CELEBREX [Concomitant]
     Active Substance: CELECOXIB
  11. BLACK COHOSH [Concomitant]
     Active Substance: BLACK COHOSH
  12. PROBIOTICS NOS [Concomitant]
     Active Substance: PROBIOTICS NOS
  13. Joint health supplement [Concomitant]

REACTIONS (5)
  - Infusion related reaction [None]
  - Breast pain [None]
  - Axillary pain [None]
  - Breast necrosis [None]
  - Ankylosing spondylitis [None]

NARRATIVE: CASE EVENT DATE: 20190601
